FAERS Safety Report 4715413-8 (Version None)
Quarter: 2005Q3

REPORT INFORMATION
  Report Type: 
  Country: None (occurrence: None)
  Receive Date: 20050715
  Receipt Date: 20050715
  Transmission Date: 20060218
  Serious: No
  Sender: FDA-Public Use
  Company Number: None

PATIENT
  Age: 23 Year
  Sex: Female
  Weight: 48.5349 kg

DRUGS (2)
  1. MIRCETTE [Suspect]
     Indication: CONTRACEPTION
     Dosage: 1 QD ORAL
     Route: 048
     Dates: start: 20050101, end: 20050601
  2. MIRCETTE [Suspect]
     Indication: MIGRAINE
     Dosage: 1 QD ORAL
     Route: 048
     Dates: start: 20050101, end: 20050601

REACTIONS (3)
  - MENSTRUAL DISORDER [None]
  - MIGRAINE [None]
  - PHARMACEUTICAL PRODUCT COMPLAINT [None]
